FAERS Safety Report 9082231 (Version 1)
Quarter: 2013Q1

REPORT INFORMATION
  Report Type: Report from Study
  Country: US (occurrence: US)
  Receive Date: 20130131
  Receipt Date: 20130131
  Transmission Date: 20140127
  Serious: No
  Sender: FDA-Public Use
  Company Number: US-ABBOTT-12P-163-0991253-00

PATIENT
  Age: 58 Year
  Sex: Male

DRUGS (8)
  1. HUMIRA [Suspect]
     Indication: CROHN^S DISEASE
  2. XANAX [Concomitant]
     Indication: ANXIETY
  3. OXYCODONE [Concomitant]
     Indication: MIGRAINE
     Dosage: I STARTED USING 40-60 PILLS A MONTH
  4. SOMA [Concomitant]
     Indication: MYALGIA
  5. LOVASSTATIN [Concomitant]
     Indication: HYPERTENSION
     Dosage: DAILY
  6. ACYCLOVIR [Concomitant]
     Indication: HERPES VIRUS INFECTION
  7. TYLENOL [Concomitant]
     Indication: HYPERSENSITIVITY
  8. BENADRYL [Concomitant]
     Indication: HYPERSENSITIVITY

REACTIONS (16)
  - Weight increased [Unknown]
  - Migraine [Recovering/Resolving]
  - Restless legs syndrome [Not Recovered/Not Resolved]
  - Fatigue [Unknown]
  - Psychomotor hyperactivity [Unknown]
  - Hypersomnia [Unknown]
  - Dyspnoea [Unknown]
  - Thirst [Unknown]
  - Rash pruritic [Recovered/Resolved]
  - Rash [Recovered/Resolved]
  - Sunburn [Recovered/Resolved]
  - Insomnia [Unknown]
  - Condition aggravated [Unknown]
  - Nausea [Unknown]
  - Headache [Not Recovered/Not Resolved]
  - Hypersomnia [Not Recovered/Not Resolved]
